FAERS Safety Report 21526922 (Version 2)
Quarter: 2022Q4

REPORT INFORMATION
  Report Type: Report from Study
  Country: GB (occurrence: GB)
  Receive Date: 20221031
  Receipt Date: 20221221
  Transmission Date: 20230113
  Serious: Yes (Hospitalization, Other)
  Sender: FDA-Public Use
  Company Number: GB-BAYER-2022A148963

PATIENT
  Age: 8 Year
  Sex: Female

DRUGS (1)
  1. VENTAVIS [Suspect]
     Active Substance: ILOPROST
     Indication: Pulmonary arterial hypertension
     Dosage: UNK
     Route: 055
     Dates: start: 20220831

REACTIONS (5)
  - Rectal haemorrhage [Unknown]
  - Hospitalisation [Unknown]
  - Abdominal pain [Unknown]
  - Device issue [Unknown]
  - Off label use [Unknown]
